FAERS Safety Report 7772224-7 (Version None)
Quarter: 2011Q3

REPORT INFORMATION
  Report Type: 
  Country: None (occurrence: None)
  Receive Date: 20110922
  Receipt Date: 20100830
  Transmission Date: 20111222
  Serious: No
  Sender: FDA-Public Use
  Company Number: US-ASTRAZENECA-2007UW10512

PATIENT
  Age: 18055 Day
  Sex: Female
  Weight: 89.4 kg

DRUGS (9)
  1. SEROQUEL [Suspect]
     Route: 048
     Dates: start: 20030701, end: 20050701
  2. ASPIRIN [Concomitant]
     Route: 048
  3. PRAVACHOL [Concomitant]
     Route: 048
  4. WELLBUTRIN [Concomitant]
     Route: 048
  5. SEROQUEL [Suspect]
     Indication: INSOMNIA
     Route: 048
     Dates: start: 20020723
  6. ZOLOFT [Concomitant]
     Route: 048
  7. SEROQUEL [Suspect]
     Route: 048
     Dates: start: 20040101, end: 20070101
  8. ENALAPRIL MALEATE [Concomitant]
     Route: 048
  9. FUROSEMIDE [Concomitant]
     Route: 048

REACTIONS (4)
  - TYPE 2 DIABETES MELLITUS [None]
  - BLOOD TRIGLYCERIDES INCREASED [None]
  - DIABETES MELLITUS [None]
  - DIABETIC COMPLICATION [None]
